FAERS Safety Report 9668099 (Version 1)
Quarter: 2013Q4

REPORT INFORMATION
  Report Type: Spontaneous
  Country: US (occurrence: None)
  Receive Date: 20131101
  Receipt Date: 20131101
  Transmission Date: 20140711
  Serious: Yes (Death)
  Sender: FDA-Public Use
  Company Number: 1224850-2013-0003

PATIENT
  Age: 68 Year
  Sex: Male
  Weight: 110 kg

DRUGS (4)
  1. PHOSLO [Suspect]
     Indication: HYPERPHOSPHATAEMIA
     Dosage: 3 WITH MEALS/ORALLY
     Route: 048
     Dates: start: 20131008, end: 20131009
  2. LIBERTY CYCLER SET [Concomitant]
  3. DELFEX PD SOLUTION [Concomitant]
  4. PHOS LO [Concomitant]

REACTIONS (3)
  - Unresponsive to stimuli [None]
  - Sudden death [None]
  - Fatigue [None]
